FAERS Safety Report 6166561-X (Version None)
Quarter: 2009Q2

REPORT INFORMATION
  Report Type: 
  Country: None (occurrence: None)
  Receive Date: 20090422
  Receipt Date: 20090422
  Transmission Date: 20091009
  Serious: Yes (Other)
  Sender: FDA-Public Use
  Company Number: None

PATIENT
  Age: 78 Year
  Sex: Male
  Weight: 78.4723 kg

DRUGS (1)
  1. NABUMETONE [Suspect]
     Indication: PLANTAR FASCIITIS
     Dosage: 2 TABETS TWICE A DAY PO
     Route: 048
     Dates: start: 20090408, end: 20090419

REACTIONS (5)
  - ABDOMINAL PAIN UPPER [None]
  - ASTHENIA [None]
  - DYSPEPSIA [None]
  - FLATULENCE [None]
  - MALAISE [None]
